FAERS Safety Report 18185708 (Version 1)
Quarter: 2020Q3

REPORT INFORMATION
  Report Type: Spontaneous
  Country: US (occurrence: US)
  Receive Date: 20200824
  Receipt Date: 20200824
  Transmission Date: 20201103
  Serious: Yes (Other)
  Sender: FDA-Public Use
  Company Number: US-SUN PHARMACEUTICAL INDUSTRIES LTD-2020R1-258079

PATIENT
  Age: 81 Year
  Sex: Male

DRUGS (5)
  1. BETAMETHASONE. [Suspect]
     Active Substance: BETAMETHASONE
     Indication: PRURITUS
     Dosage: UNK
     Route: 061
  2. MOMETASONE [Suspect]
     Active Substance: MOMETASONE
     Indication: PRURITUS
     Route: 061
  3. CLOBETASOL [Suspect]
     Active Substance: CLOBETASOL
     Indication: PRURITUS
     Route: 061
  4. PREDNISONE. [Suspect]
     Active Substance: PREDNISONE
     Indication: PRURITUS
     Dosage: 5 MILLIGRAM, DAILY FOR 3 MONTHS
     Route: 065
  5. MIRTAZAPINE. [Suspect]
     Active Substance: MIRTAZAPINE
     Indication: PRURITUS
     Dosage: 15 MILLIGRAM
     Route: 065

REACTIONS (1)
  - Treatment failure [Unknown]
